FAERS Safety Report 9087135 (Version 1)
Quarter: 2013Q1

REPORT INFORMATION
  Report Type: Spontaneous
  Country: GB (occurrence: GB)
  Receive Date: 20130217
  Receipt Date: 20130217
  Transmission Date: 20140127
  Serious: Yes (Other)
  Sender: FDA-Public Use
  Company Number: GB-TEVA-385454ISR

PATIENT
  Age: 14 Year
  Sex: Female

DRUGS (2)
  1. PROPRANOLOL [Suspect]
     Indication: MIGRAINE
     Dosage: 40 MILLIGRAM DAILY; 1DF= 40 MG PROPRANOLOL IN DIVIDED DOSES
     Route: 065
  2. PROPRANOLOL [Suspect]
     Dosage: 80 MILLIGRAM DAILY;
     Route: 065
     Dates: end: 20130204

REACTIONS (7)
  - Wrist fracture [Unknown]
  - Fall [Recovered/Resolved]
  - Lower respiratory tract infection [Unknown]
  - Head injury [Unknown]
  - Dizziness [Not Recovered/Not Resolved]
  - Cough [Unknown]
  - Dizziness [Not Recovered/Not Resolved]
